FAERS Safety Report 17506815 (Version 4)
Quarter: 2022Q1

REPORT INFORMATION
  Report Type: Spontaneous
  Country: US (occurrence: None)
  Receive Date: 20200305
  Receipt Date: 20220314
  Transmission Date: 20220423
  Serious: No
  Sender: FDA-Public Use
  Company Number: US-ROCHE-2481840

PATIENT
  Age: 82 Year
  Sex: Female

DRUGS (2)
  1. XOLAIR [Suspect]
     Active Substance: OMALIZUMAB
     Indication: Idiopathic urticaria
     Dosage: SOL 150MG INJ/ SDV
     Route: 058
     Dates: start: 20170712
  2. XOLAIR [Suspect]
     Active Substance: OMALIZUMAB
     Dosage: SOL 150MG INJ/ SDV
     Route: 058
     Dates: start: 20181112

REACTIONS (2)
  - Off label use [Unknown]
  - No adverse event [Unknown]

NARRATIVE: CASE EVENT DATE: 20210709
